FAERS Safety Report 6569879-1 (Version None)
Quarter: 2010Q1

REPORT INFORMATION
  Report Type: 
  Country: None (occurrence: None)
  Receive Date: 20100204
  Receipt Date: 20100125
  Transmission Date: 20100710
  Serious: Yes (Hospitalization)
  Sender: FDA-Public Use
  Company Number: PHHY2010FR04383

PATIENT
  Age: 19 Year
  Sex: Male

DRUGS (1)
  1. EXJADE [Suspect]
     Dosage: UNK
     Dates: start: 20090521

REACTIONS (3)
  - HYPERAMMONAEMIA [None]
  - NAUSEA [None]
  - VOMITING [None]
